FAERS Safety Report 8877706 (Version 1)
Quarter: 2012Q4

REPORT INFORMATION
  Report Type: Spontaneous
  Country: US (occurrence: None)
  Receive Date: 20121026
  Receipt Date: 20121026
  Transmission Date: 20130627
  Serious: Yes (Other)
  Sender: FDA-Public Use
  Company Number: 2012AP003457

PATIENT
  Age: 37 Year
  Sex: Female

DRUGS (5)
  1. FLUCONAZOLE [Suspect]
     Indication: PROPHYLAXIS
     Dosage: 400 mg; Unknown; QD
  2. AMPHOTERICIN B, LIPOSOME (AMPHOTERICIN B, LIPOSOME) [Concomitant]
  3. ZIDOVUDING W/ LAMIVUDINE (ZIDOVUDINE W/ LAMIVUDINE) [Suspect]
  4. AMPHOTERICIN B. LIPOSOME (AMPHOTERICIN B, LIPOSOME) [Concomitant]
  5. FLUCYTOSINE (FLUCYTOSINE) FLUCYTOSINE (FLUCYTOSINE) [Concomitant]

REACTIONS (9)
  - Immune reconstitution inflammatory syndrome [None]
  - Headache [None]
  - Anaemia [None]
  - Pyrexia [None]
  - Renal impairment [None]
  - Autoimmune thyroiditis [None]
  - Hypothyroidism [None]
  - Neck pain [None]
  - Hyperthyroidism [None]
